FAERS Safety Report 12605039 (Version 1)
Quarter: 2016Q3

REPORT INFORMATION
  Report Type: Spontaneous
  Country: DE (occurrence: DE)
  Receive Date: 20160728
  Receipt Date: 20160728
  Transmission Date: 20161109
  Serious: Yes (Hospitalization)
  Sender: FDA-Public Use
  Company Number: DE-ASTRAZENECA-2016SE78789

PATIENT
  Age: 31 Year
  Sex: Female

DRUGS (2)
  1. PREGABALIN. [Suspect]
     Active Substance: PREGABALIN
     Dosage: ABOUT 1200 MG ACCORDING TO PATIENT
     Route: 048
     Dates: start: 20160115
  2. SEROQUEL [Suspect]
     Active Substance: QUETIAPINE FUMARATE
     Route: 048
     Dates: start: 20160115

REACTIONS (4)
  - Blood creatine phosphokinase increased [Recovering/Resolving]
  - Atrioventricular block first degree [Recovering/Resolving]
  - Overdose [Recovering/Resolving]
  - Electrocardiogram QT prolonged [Recovering/Resolving]

NARRATIVE: CASE EVENT DATE: 20160115
